FAERS Safety Report 17131273 (Version 1)
Quarter: 2019Q4

REPORT INFORMATION
  Report Type: Spontaneous
  Country: SE (occurrence: SE)
  Receive Date: 20191209
  Receipt Date: 20191209
  Transmission Date: 20200122
  Serious: Yes (Hospitalization)
  Sender: FDA-Public Use
  Company Number: SE-009507513-1912SWE000885

PATIENT
  Age: 38 Year
  Sex: Female

DRUGS (3)
  1. THERALEN [Suspect]
     Active Substance: TRIMEPRAZINE
     Route: 048
     Dates: start: 20181116, end: 20181116
  2. MIRTAZAPINE. [Suspect]
     Active Substance: MIRTAZAPINE
     Dosage: 10X15 MG
     Route: 048
     Dates: start: 20181116, end: 20181116
  3. PROPAVAN [Suspect]
     Active Substance: PROPIOMAZINE
     Route: 048
     Dates: start: 20181116, end: 20181116

REACTIONS (4)
  - Intentional overdose [Unknown]
  - Dizziness [Unknown]
  - Fatigue [Unknown]
  - Intentional self-injury [Unknown]

NARRATIVE: CASE EVENT DATE: 20181116
